FAERS Safety Report 15634344 (Version 1)
Quarter: 2018Q4

REPORT INFORMATION
  Report Type: Spontaneous
  Country: US (occurrence: US)
  Receive Date: 20181119
  Receipt Date: 20181119
  Transmission Date: 20190205
  Serious: No
  Sender: FDA-Public Use
  Company Number: US-009507513-1810USA014022

PATIENT
  Age: 40 Year
  Sex: Male

DRUGS (1)
  1. PREGNYL [Suspect]
     Active Substance: CHORIOGONADOTROPIN ALFA

REACTIONS (5)
  - Product dose omission [Unknown]
  - Lethargy [Not Recovered/Not Resolved]
  - Mood swings [Not Recovered/Not Resolved]
  - Sluggishness [Not Recovered/Not Resolved]
  - Fatigue [Not Recovered/Not Resolved]

NARRATIVE: CASE EVENT DATE: 2018
